FAERS Safety Report 5319536-4 (Version None)
Quarter: 2007Q2

REPORT INFORMATION
  Report Type: 
  Country: None (occurrence: None)
  Receive Date: 20070508
  Receipt Date: 20070426
  Transmission Date: 20071010
  Serious: Yes (Hospitalization, Other)
  Sender: FDA-Public Use
  Company Number: BR-PFIZER INC-2007034686

PATIENT
  Sex: Female

DRUGS (4)
  1. LIPITOR [Suspect]
     Indication: DYSLIPIDAEMIA
     Route: 048
  2. ATENOLOL [Concomitant]
     Route: 048
  3. ACETYLSALICYLIC ACID SRT [Concomitant]
     Route: 048
     Dates: start: 20020101
  4. VITAMINS [Concomitant]
     Route: 048

REACTIONS (2)
  - ANGIOPATHY [None]
  - ARRHYTHMIA [None]
